FAERS Safety Report 7414782-8 (Version None)
Quarter: 2011Q1

REPORT INFORMATION
  Report Type: 
  Country: None (occurrence: None)
  Receive Date: 20110301
  Receipt Date: 20100322
  Transmission Date: 20110831
  Serious: Yes (Hospitalization)
  Sender: FDA-Public Use
  Company Number: US-JNJFOC-20100100777

PATIENT
  Age: 69 Year
  Sex: Male
  Weight: 95.709 kg

DRUGS (5)
  1. IBUPROFEN [Suspect]
     Indication: ILL-DEFINED DISORDER
     Dosage: 400 MG, 1 IN 4 HOUR, ORAL
     Route: 048
     Dates: start: 20091211, end: 20091226
  2. ZOCOR [Concomitant]
  3. NYQUIL (MEDINITE /00448801/) [Concomitant]
  4. ALDACTAZIDE (ALDACTAZIDE) [Concomitant]
  5. STUDY MEDICATION (INVESTIGATIONAL DRUG) SOLUTION [Suspect]
     Indication: OSTEOARTHRITIS
     Dosage: 1 IN 8 WEEK, INTRAVENOUS
     Route: 042
     Dates: start: 20091123

REACTIONS (1)
  - GASTRIC ULCER HAEMORRHAGE [None]
